FAERS Safety Report 4633180-3 (Version None)
Quarter: 2005Q2

REPORT INFORMATION
  Report Type: 
  Country: None (occurrence: None)
  Receive Date: 20050411
  Receipt Date: 20050411
  Transmission Date: 20051028
  Serious: No
  Sender: FDA-Public Use
  Company Number: None

PATIENT
  Sex: Female
  Weight: 42.2 kg

DRUGS (2)
  1. CYTARABINE [Suspect]
     Indication: ACUTE MYELOID LEUKAEMIA
     Dosage: 1 G/M2 X 10  DOSES
     Dates: start: 20041025
  2. ETOPOSIDE [Suspect]
     Dosage: 150 MG/M2 X 5 DOSES

REACTIONS (6)
  - ENCEPHALOPATHY [None]
  - EYE MOVEMENT DISORDER [None]
  - IIIRD NERVE PARALYSIS [None]
  - MENINGITIS [None]
  - NERVOUS SYSTEM DISORDER [None]
  - PUPILS UNEQUAL [None]
